FAERS Safety Report 9512500 (Version 2)
Quarter: 2013Q4

REPORT INFORMATION
  Report Type: Spontaneous
  Country: FR (occurrence: FR)
  Receive Date: 20130910
  Receipt Date: 20131113
  Transmission Date: 20140711
  Serious: Yes (Hospitalization, Other)
  Sender: FDA-Public Use
  Company Number: FR-PFIZER INC-2013256468

PATIENT
  Age: 95 Year
  Sex: Female

DRUGS (13)
  1. ALDACTONE [Suspect]
     Dosage: 25 MG, 1X/DAY
     Route: 048
     Dates: end: 20130723
  2. ALDACTONE [Interacting]
     Dosage: UNK
  3. COAPROVEL [Interacting]
     Dosage: 1 DF, 1X/DAY
     Route: 048
     Dates: end: 20130723
  4. COAPROVEL [Interacting]
     Dosage: UNK
  5. IDARAC [Concomitant]
     Dosage: 200 MG, 3X/DAY
     Route: 048
     Dates: start: 20130221, end: 20130723
  6. CARDENSIEL [Concomitant]
     Dosage: 2.5 MG, 1X/DAY
     Route: 048
     Dates: end: 20130723
  7. LERCAN [Concomitant]
     Dosage: 20 MG, 1X/DAY
     Route: 048
     Dates: end: 20130723
  8. AMIODARONE [Concomitant]
     Dosage: 1 DF, 1X/DAY
     Route: 048
  9. KARDEGIC [Concomitant]
     Dosage: 75 MG, 1X/DAY
     Route: 048
  10. TRANSIPEG [Concomitant]
     Dosage: 1 DF, 1X/DAY
     Route: 048
  11. DEBRIDAT [Concomitant]
     Dosage: 1 DF, 3X/DAY
     Route: 048
  12. OROCAL D3 [Concomitant]
     Dosage: 2 DF, 1X/DAY
     Route: 048
  13. BACTRIM [Concomitant]
     Indication: URINARY TRACT INFECTION
     Dosage: UNK
     Dates: start: 20130713

REACTIONS (12)
  - Renal failure acute [Recovered/Resolved]
  - Hyperkalaemia [Recovered/Resolved]
  - Hyponatraemia [Recovered/Resolved]
  - Urinary tract infection [Unknown]
  - Dyspnoea [Unknown]
  - Asthenia [Unknown]
  - Drug interaction [Recovered/Resolved]
  - Bradycardia [Recovered/Resolved]
  - Electrocardiogram abnormal [Recovered/Resolved]
  - Hyperkalaemia [Unknown]
  - Renal failure acute [Unknown]
  - Hyponatraemia [Unknown]
